FAERS Safety Report 6877144-8 (Version None)
Quarter: 2010Q3

REPORT INFORMATION
  Report Type: 
  Country: None (occurrence: None)
  Receive Date: 20100727
  Receipt Date: 20100719
  Transmission Date: 20110219
  Serious: Yes (Life-Threatening, Hospitalization)
  Sender: FDA-Public Use
  Company Number: DE-ROCHE-717123

PATIENT
  Sex: Male

DRUGS (4)
  1. XELODA [Suspect]
     Route: 048
     Dates: start: 20100316, end: 20100329
  2. XELODA [Suspect]
     Route: 048
  3. OXALIPLATIN [Suspect]
     Route: 042
     Dates: start: 20100316, end: 20100316
  4. OXALIPLATIN [Suspect]
     Route: 042

REACTIONS (2)
  - DIARRHOEA [None]
  - RENAL FAILURE [None]
